FAERS Safety Report 19727326 (Version 2)
Quarter: 2021Q3

REPORT INFORMATION
  Report Type: Report from Study
  Country: ES (occurrence: ES)
  Receive Date: 20210820
  Receipt Date: 20210924
  Transmission Date: 20211014
  Serious: Yes (Hospitalization)
  Sender: FDA-Public Use
  Company Number: ES-GLAXOSMITHKLINE-ES2021GSK171840

PATIENT
  Age: 67 Year
  Sex: Female
  Weight: 88 kg

DRUGS (11)
  1. CITALOPRAM [Concomitant]
     Active Substance: CITALOPRAM HYDROBROMIDE
     Indication: ANXIETY
     Dosage: 10 MG, QD
     Route: 048
     Dates: start: 20190228
  2. DULAGLUTIDE. [Concomitant]
     Active Substance: DULAGLUTIDE
     Indication: DIABETES MELLITUS
     Dosage: 1.5 MG, Z(QW)
     Route: 058
     Dates: start: 20180911
  3. DOSTARLIMAB [Suspect]
     Active Substance: DOSTARLIMAB
     Indication: CERVIX CARCINOMA
     Dosage: 500 MG (FIRST AND LAST CYCLE RECEIVED)
     Route: 042
     Dates: start: 20210630, end: 20210630
  4. METOCLOPRAMIDE. [Concomitant]
     Active Substance: METOCLOPRAMIDE
     Indication: NAUSEA
     Dosage: 5 MG/ML, TID
     Route: 048
     Dates: start: 20210711
  5. ROSUVASTATIN. [Concomitant]
     Active Substance: ROSUVASTATIN
     Indication: HYPERCHOLESTEROLAEMIA
     Dosage: 20 MG, QD
     Route: 048
     Dates: start: 20190826
  6. METFORMIN [Concomitant]
     Active Substance: METFORMIN HYDROCHLORIDE
     Indication: DIABETES MELLITUS
     Dosage: 850 MG, BID
     Route: 048
     Dates: start: 20190210
  7. PARACETAMOL [Concomitant]
     Active Substance: ACETAMINOPHEN
     Indication: PROPHYLAXIS
     Dosage: 6 MG, TID
     Route: 048
     Dates: start: 20210711
  8. CANAGLIFLOZIN [Concomitant]
     Active Substance: CANAGLIFLOZIN
     Indication: DIABETES MELLITUS
     Dosage: 300 MG, QD
     Route: 048
     Dates: start: 20191129
  9. DIAZEPAM. [Concomitant]
     Active Substance: DIAZEPAM
     Indication: ANXIETY
     Dosage: 10 MG, TID
     Route: 048
     Dates: start: 20130720
  10. ETORICOXIB. [Concomitant]
     Active Substance: ETORICOXIB
     Indication: ABDOMINAL PAIN LOWER
     Dosage: 60 MG, QD
     Route: 048
     Dates: start: 20210506, end: 20210805
  11. INSULIN [Concomitant]
     Active Substance: INSULIN NOS
     Indication: DIABETES MELLITUS
     Dosage: 45 UI, QD
     Route: 058
     Dates: start: 20120206

REACTIONS (1)
  - Back pain [Recovered/Resolved]

NARRATIVE: CASE EVENT DATE: 20210728
